FAERS Safety Report 11249072 (Version 1)
Quarter: 2015Q3

REPORT INFORMATION
  Report Type: Spontaneous
  Country: US (occurrence: US)
  Receive Date: 20150708
  Receipt Date: 20150708
  Transmission Date: 20151125
  Serious: Yes (Hospitalization)
  Sender: FDA-Public Use
  Company Number: US-ELI_LILLY_AND_COMPANY-US200808003038

PATIENT
  Age: 16 Year
  Sex: Female
  Weight: 56.5 kg

DRUGS (2)
  1. ALIMTA [Suspect]
     Active Substance: PEMETREXED DISODIUM
     Indication: GLIOBLASTOMA MULTIFORME
     Dates: start: 20080508, end: 20080508
  2. ENZASTAURIN [Concomitant]
     Active Substance: ENZASTAURIN
     Indication: GLIOBLASTOMA MULTIFORME
     Dosage: 700 MG, DAILY (1/D)
     Route: 048
     Dates: start: 20080605, end: 20080809

REACTIONS (1)
  - Peripheral sensory neuropathy [Recovering/Resolving]

NARRATIVE: CASE EVENT DATE: 20080808
